FAERS Safety Report 10448488 (Version 1)
Quarter: 2014Q3

REPORT INFORMATION
  Report Type: Spontaneous
  Country: US (occurrence: US)
  Receive Date: 20140911
  Receipt Date: 20140911
  Transmission Date: 20150326
  Serious: Yes (Hospitalization)
  Sender: FDA-Public Use
  Company Number: US-B.I. PHARMACEUTICALS,INC./RIDGEFIELD-2014-BI-42402BP

PATIENT
  Age: 81 Year
  Sex: Male
  Weight: 97.7 kg

DRUGS (3)
  1. PATADAY [Concomitant]
     Active Substance: OLOPATADINE HYDROCHLORIDE
     Indication: PRODUCT USED FOR UNKNOWN INDICATION
     Dosage: ROUTE: IN EACH EYE; STRENGTH: 0.2%; DOSE PER APPLICATION AND DAILY DOSE: ONE DROP IN EACH EYE
     Route: 050
  2. PRADAXA [Suspect]
     Active Substance: DABIGATRAN ETEXILATE MESYLATE
     Indication: ATRIAL FIBRILLATION
     Dosage: 150 MG
     Route: 048
     Dates: end: 20120802
  3. AMBIEN [Concomitant]
     Active Substance: ZOLPIDEM TARTRATE
     Indication: INSOMNIA
     Dosage: STRENGTH: 5 MG; DOSE PER APPLICATION AND DAILY DOSE: 1-2 TABS AT BEDTIME AS NEEDED
     Route: 048

REACTIONS (5)
  - Diverticulum [Unknown]
  - Gastritis [Unknown]
  - Gastrointestinal haemorrhage [Not Recovered/Not Resolved]
  - Anaemia [Recovered/Resolved]
  - Coagulopathy [Unknown]

NARRATIVE: CASE EVENT DATE: 20120802
